FAERS Safety Report 4395048-X (Version None)
Quarter: 2004Q3

REPORT INFORMATION
  Report Type: 
  Country: None (occurrence: None)
  Receive Date: 20040707
  Receipt Date: 20040623
  Transmission Date: 20050211
  Serious: Yes (Other)
  Sender: FDA-Public Use
  Company Number: 2004220398US

PATIENT
  Sex: 0

DRUGS (1)
  1. XALATAN [Suspect]
     Dosage: 1 GTT, QD, OPHTHALMIC
     Route: 047

REACTIONS (3)
  - COLOBOMA [None]
  - DRUG EXPOSURE DURING PREGNANCY [None]
  - PREGNANCY [None]
